FAERS Safety Report 5654430-0 (Version None)
Quarter: 2008Q1

REPORT INFORMATION
  Report Type: 
  Country: None (occurrence: None)
  Receive Date: 20080305
  Receipt Date: 20080226
  Transmission Date: 20080703
  Serious: Yes (Hospitalization)
  Sender: FDA-Public Use
  Company Number: 2008S1001341

PATIENT
  Age: 73 Year
  Sex: Male

DRUGS (1)
  1. FLEET BISACODYL TABLETS [Suspect]
     Indication: LAXATIVE SUPPORTIVE CARE
     Dosage: 10 MG; PO
     Route: 048
     Dates: start: 20040101, end: 20040101

REACTIONS (3)
  - ACCIDENT [None]
  - CARDIAC OPERATION [None]
  - CHEST PAIN [None]
